FAERS Safety Report 7552961-X (Version None)
Quarter: 2011Q2

REPORT INFORMATION
  Report Type: 
  Country: None (occurrence: None)
  Receive Date: 20110616
  Receipt Date: 20110603
  Transmission Date: 20111010
  Serious: Yes (Life-Threatening)
  Sender: FDA-Public Use
  Company Number: GB-GENENTECH-316534

PATIENT
  Age: 50 Year
  Sex: Male

DRUGS (11)
  1. RITUXIMAB [Suspect]
     Indication: NON-HODGKIN'S LYMPHOMA UNSPECIFIED HISTOLOGY AGGRESSIVE
     Dosage: UNK
     Route: 065
  2. ETOPOSIDE [Suspect]
     Indication: NON-HODGKIN'S LYMPHOMA UNSPECIFIED HISTOLOGY AGGRESSIVE
     Dosage: UNK
     Route: 065
  3. DOXORUBICIN HCL [Suspect]
     Indication: NON-HODGKIN'S LYMPHOMA UNSPECIFIED HISTOLOGY AGGRESSIVE
     Dosage: UNK
     Route: 065
  4. IFOSFAMIDE [Suspect]
     Indication: NON-HODGKIN'S LYMPHOMA UNSPECIFIED HISTOLOGY AGGRESSIVE
     Dosage: UNK
     Route: 065
  5. MESNA [Concomitant]
     Indication: NON-HODGKIN'S LYMPHOMA UNSPECIFIED HISTOLOGY AGGRESSIVE
     Dosage: UNK
     Route: 065
  6. CYCLOPHOSPHAMIDE [Suspect]
     Indication: NON-HODGKIN'S LYMPHOMA UNSPECIFIED HISTOLOGY AGGRESSIVE
     Dosage: UNK
     Route: 065
  7. METHOTREXATE [Suspect]
     Indication: NON-HODGKIN'S LYMPHOMA UNSPECIFIED HISTOLOGY AGGRESSIVE
     Dosage: UNK
     Route: 065
  8. CLOZAPINE [Suspect]
     Dosage: UNK
     Route: 048
     Dates: start: 20040915
  9. CYTARABINE [Suspect]
     Indication: NON-HODGKIN'S LYMPHOMA UNSPECIFIED HISTOLOGY AGGRESSIVE
     Dosage: UNK
     Route: 065
  10. VINCRISTINE [Suspect]
     Indication: NON-HODGKIN'S LYMPHOMA UNSPECIFIED HISTOLOGY AGGRESSIVE
     Dosage: UNK
     Route: 065
  11. CLOZAPINE [Suspect]
     Indication: PRODUCT USED FOR UNKNOWN INDICATION
     Dosage: UNK
     Route: 048
     Dates: start: 20040915

REACTIONS (6)
  - WHITE BLOOD CELL COUNT DECREASED [None]
  - AGRANULOCYTOSIS [None]
  - NEUTROPENIA [None]
  - NON-HODGKIN'S LYMPHOMA UNSPECIFIED HISTOLOGY AGGRESSIVE [None]
  - LEUKOPENIA [None]
  - DRUG INTERACTION [None]
